FAERS Safety Report 7064260-3 (Version None)
Quarter: 2010Q4

REPORT INFORMATION
  Report Type: 
  Country: None (occurrence: None)
  Receive Date: 20101027
  Receipt Date: 20101015
  Transmission Date: 20110411
  Serious: Yes (Other)
  Sender: FDA-Public Use
  Company Number: US-JNJFOC-20101004978

PATIENT
  Sex: Male
  Weight: 78.47 kg

DRUGS (15)
  1. GOLIMUMAB [Suspect]
     Indication: RHEUMATOID ARTHRITIS
     Route: 058
  2. GOLIMUMAB [Suspect]
     Route: 058
  3. PLACEBO [Suspect]
     Indication: RHEUMATOID ARTHRITIS
     Route: 048
  4. METHOTREXATE [Concomitant]
     Route: 048
  5. VICODIN [Concomitant]
     Route: 048
  6. SOMA [Concomitant]
     Route: 048
  7. ATENOLOL [Concomitant]
     Route: 048
  8. ACETAMINOPHEN [Concomitant]
     Route: 050
  9. FOLIC ACID [Concomitant]
     Route: 048
  10. VISINE EYE DROPS NOS [Concomitant]
     Route: 047
  11. ACETAMINOPHEN [Concomitant]
     Route: 048
  12. PREDNISONE [Concomitant]
     Route: 048
  13. PREDNISONE [Concomitant]
     Route: 048
  14. PREDNISONE [Concomitant]
     Route: 048
  15. PREDNISONE [Concomitant]
     Route: 048

REACTIONS (1)
  - CUTANEOUS LUPUS ERYTHEMATOSUS [None]
